FAERS Safety Report 6956907-4 (Version None)
Quarter: 2010Q3

REPORT INFORMATION
  Report Type: 
  Country: None (occurrence: None)
  Receive Date: 20100830
  Receipt Date: 20100729
  Transmission Date: 20110219
  Serious: No
  Sender: FDA-Public Use
  Company Number: US-ALLERGAN-1009887US

PATIENT
  Age: 76 Year
  Sex: Female

DRUGS (2)
  1. SANCTURA XR [Suspect]
     Indication: INCONTINENCE
     Dosage: 60 MG, QD
     Route: 048
     Dates: start: 20100601, end: 20100727
  2. SANCTURA XR [Suspect]
     Dosage: 60 MG, QD
     Route: 048
     Dates: start: 20100729

REACTIONS (5)
  - DRY MOUTH [None]
  - GLOSSODYNIA [None]
  - OEDEMA PERIPHERAL [None]
  - TONGUE DISORDER [None]
  - TONGUE DRY [None]
